FAERS Safety Report 5115233-9 (Version None)
Quarter: 2006Q3

REPORT INFORMATION
  Report Type: 
  Country: None (occurrence: None)
  Receive Date: 20060921
  Receipt Date: 20060828
  Transmission Date: 20061208
  Serious: Yes (Other)
  Sender: FDA-Public Use
  Company Number: CHNY2006BR01465

PATIENT
  Age: 10 Month
  Sex: Male
  Weight: 13 kg

DRUGS (2)
  1. AGASTEN (NCH) (CLEMASTINE HYDROGEN FUMARATE) SYRUP [Suspect]
     Indication: HYPERSENSITIVITY
     Dosage: WHEN PATIENT WAS 5 MONTHS; SEE IMAGE
     Dates: start: 20060501
  2. DIPYRONE (METAMIZOLE SODIUM) [Suspect]
     Indication: PYREXIA
     Dosage: 1 DOSE IN THE MORNING

REACTIONS (5)
  - ASTHMA [None]
  - CONDITION AGGRAVATED [None]
  - DYSPNOEA [None]
  - LARYNGITIS [None]
  - OVERDOSE [None]
